FAERS Safety Report 4700349-9 (Version None)
Quarter: 2005Q2

REPORT INFORMATION
  Report Type: 
  Country: None (occurrence: None)
  Receive Date: 20050624
  Receipt Date: 20040827
  Transmission Date: 20051028
  Serious: Yes (Other)
  Sender: FDA-Public Use
  Company Number: 346733

PATIENT
  Sex: Female

DRUGS (1)
  1. XELODA [Suspect]
     Dosage: ORAL
     Route: 048
     Dates: start: 20030615

REACTIONS (10)
  - DYSPHONIA [None]
  - ERYTHEMA [None]
  - GASTRIC ULCER [None]
  - HYPOAESTHESIA [None]
  - LACRIMATION INCREASED [None]
  - OEDEMA PERIPHERAL [None]
  - ONYCHOMADESIS [None]
  - PAIN [None]
  - PAIN IN EXTREMITY [None]
  - PARAESTHESIA [None]
